FAERS Safety Report 25492230 (Version 2)
Quarter: 2025Q4

REPORT INFORMATION
  Report Type: Spontaneous
  Country: GB (occurrence: GB)
  Receive Date: 20250630
  Receipt Date: 20251104
  Transmission Date: 20260117
  Serious: Yes (Hospitalization)
  Sender: TEVA
  Company Number: GB-PFIZER INC-PV202500071766

PATIENT
  Age: 75 Year
  Sex: Male
  Weight: 95 kg

DRUGS (16)
  1. CARBOPLATIN [Suspect]
     Active Substance: CARBOPLATIN
     Indication: Non-small cell lung cancer
     Dosage: DURATION: 1 DAYS
     Route: 065
     Dates: start: 20250508, end: 20250508
  2. CARBOPLATIN [Suspect]
     Active Substance: CARBOPLATIN
     Indication: Non-small cell lung cancer
     Dosage: AUC 5
     Route: 042
     Dates: start: 20250319
  3. CARBOPLATIN [Suspect]
     Active Substance: CARBOPLATIN
     Indication: Non-small cell lung cancer
     Dosage: DURATION: 1 DAYS
     Route: 065
     Dates: start: 20250409, end: 20250409
  4. TINZAPARIN [Concomitant]
     Active Substance: TINZAPARIN
     Indication: Prophylaxis
     Dosage: UNK, DURATION: 5 DAYS
     Dates: start: 20250421, end: 20250425
  5. FOLIC ACID [Concomitant]
     Active Substance: FOLIC ACID
     Indication: Product used for unknown indication
     Dosage: UNK, DURATION: 71
     Dates: start: 20250228, end: 20250509
  6. VITAMIN B12 [Concomitant]
     Active Substance: CYANOCOBALAMIN
     Indication: Product used for unknown indication
     Dosage: UNK, [VITAMIN B12 NOS], DURATION: 91 DAYS
     Dates: start: 20250228, end: 20250529
  7. BISOPROLOL [Concomitant]
     Active Substance: BISOPROLOL
     Indication: Product used for unknown indication
     Dosage: UNK, DURATION: 5932 DAYS
     Dates: start: 20090306, end: 20250601
  8. HYALURONATE SODIUM [Concomitant]
     Active Substance: HYALURONATE SODIUM
     Indication: Oral pain
     Dosage: UNK, DURATION: 57 DAYS
     Dates: start: 20250401, end: 20250527
  9. ACETAMINOPHEN [Concomitant]
     Active Substance: ACETAMINOPHEN
     Indication: Myalgia
     Dosage: UNK
     Dates: start: 20250402
  10. ATORVASTATIN [Concomitant]
     Active Substance: ATORVASTATIN
     Indication: Product used for unknown indication
     Dosage: UNK
     Dates: start: 20230612
  11. AMLODIPINE [Concomitant]
     Active Substance: AMLODIPINE BESYLATE
     Indication: Product used for unknown indication
     Dosage: UNK, DURATION: 5888 DAYS
     Dates: start: 20090308, end: 20250420
  12. PERINDOPRIL [Concomitant]
     Active Substance: PERINDOPRIL
     Indication: Hypertension
     Dosage: UNK, DURATION: 5890 DAYS
     Dates: start: 20090306, end: 20250420
  13. DEXAMETHASONE [Concomitant]
     Active Substance: DEXAMETHASONE
     Indication: Prophylaxis
     Dosage: UNK
     Dates: start: 20250303
  14. EDOXABAN [Concomitant]
     Active Substance: EDOXABAN
     Indication: Atrial fibrillation
     Dosage: UNK, DURATION: 679 DAYS
     Dates: start: 20230612, end: 20250420
  15. ASPIRIN [Concomitant]
     Active Substance: ASPIRIN
     Indication: Atrial fibrillation
     Dosage: UNK,  [ACETYLSALICYLIC ACID], DURATION: 4 DAYS
     Dates: start: 20250422, end: 20250425
  16. POVIDONE [Concomitant]
     Active Substance: POVIDONE
     Indication: Oral pain
     Dosage: UNK, DURATION: 57 DAYS
     Dates: start: 20250401, end: 20250527

REACTIONS (2)
  - Diarrhoea [Recovered/Resolved]
  - Acute kidney injury [Recovered/Resolved]

NARRATIVE: CASE EVENT DATE: 20250420
